FAERS Safety Report 6184838-9 (Version None)
Quarter: 2009Q2

REPORT INFORMATION
  Report Type: 
  Country: None (occurrence: None)
  Receive Date: 20090508
  Receipt Date: 20090427
  Transmission Date: 20091009
  Serious: Yes (Other)
  Sender: FDA-Public Use
  Company Number: US-PFIZER INC-2009176823

PATIENT
  Sex: Male
  Weight: 82.54 kg

DRUGS (7)
  1. ZOLOFT [Suspect]
     Indication: OBSESSIVE-COMPULSIVE DISORDER
     Dosage: UNK
     Route: 048
     Dates: start: 20090210, end: 20090303
  2. ZOLOFT [Suspect]
     Indication: ANXIETY
  3. ZOLOFT [Suspect]
     Indication: DEPRESSION
  4. ZOCOR [Concomitant]
     Indication: BLOOD CHOLESTEROL INCREASED
     Dosage: 40 MG, UNK
  5. ZETIA [Concomitant]
     Indication: BLOOD CHOLESTEROL INCREASED
     Dosage: 10 MG, UNK
  6. ANDROGEL [Concomitant]
     Indication: BLOOD TESTOSTERONE DECREASED
     Dosage: UNK
  7. XANAX [Concomitant]
     Dosage: UNK

REACTIONS (10)
  - ANOREXIA [None]
  - ANTINUCLEAR ANTIBODY INCREASED [None]
  - DYSKINESIA [None]
  - EJACULATION FAILURE [None]
  - FEELING ABNORMAL [None]
  - MYOCLONUS [None]
  - SOMNOLENCE [None]
  - TREMOR [None]
  - WEIGHT DECREASED [None]
  - YAWNING [None]
